FAERS Safety Report 23534982 (Version 1)
Quarter: 2024Q1

REPORT INFORMATION
  Report Type: Spontaneous
  Country: GB (occurrence: GB)
  Receive Date: 20240217
  Receipt Date: 20240217
  Transmission Date: 20240410
  Serious: Yes (Life-Threatening, Disabling, Other)
  Sender: FDA-Public Use
  Company Number: None

PATIENT
  Age: 57 Year
  Sex: Male
  Weight: 68 kg

DRUGS (1)
  1. QUETIAPINE [Suspect]
     Active Substance: QUETIAPINE
     Indication: Depression
     Dosage: 25MG ONE AT NIGHT
     Route: 065
     Dates: start: 20230414

REACTIONS (9)
  - Bradycardia [Not Recovered/Not Resolved]
  - Malaise [Unknown]
  - Palpitations [Recovered/Resolved]
  - Arrhythmia [Unknown]
  - Dizziness [Unknown]
  - Hypotension [Unknown]
  - Withdrawal syndrome [Unknown]
  - Syncope [Unknown]
  - Therapy cessation [Unknown]

NARRATIVE: CASE EVENT DATE: 20230420
